FAERS Safety Report 13031570 (Version 2)
Quarter: 2017Q1

REPORT INFORMATION
  Report Type: Report from Study
  Country: US (occurrence: US)
  Receive Date: 20161215
  Receipt Date: 20170103
  Transmission Date: 20170428
  Serious: Yes (Hospitalization, Other)
  Sender: FDA-Public Use
  Company Number: US-BAYER-2016-217110

PATIENT
  Age: 60 Year
  Sex: Male

DRUGS (3)
  1. NEXAVAR [Suspect]
     Active Substance: SORAFENIB
     Indication: HEPATOCELLULAR CARCINOMA
     Dosage: 200 MG, BID
     Route: 048
     Dates: start: 20161207, end: 20161207
  2. NEXAVAR [Suspect]
     Active Substance: SORAFENIB
     Indication: HEPATOCELLULAR CARCINOMA
     Dosage: DAILY DOSE 200 MG
     Route: 048
     Dates: start: 201612, end: 201612
  3. NEXAVAR [Suspect]
     Active Substance: SORAFENIB
     Indication: HEPATOCELLULAR CARCINOMA
     Dosage: 400 MG, BID
     Route: 048
     Dates: start: 20161102, end: 20161102

REACTIONS (8)
  - Localised infection [None]
  - Hallucination [None]
  - Incontinence [None]
  - Abdominal pain [Not Recovered/Not Resolved]
  - Fear [None]
  - Kidney infection [Not Recovered/Not Resolved]
  - Hypersomnia [None]
  - Confusional state [None]

NARRATIVE: CASE EVENT DATE: 20161102
